FAERS Safety Report 5825801-4 (Version None)
Quarter: 2008Q3

REPORT INFORMATION
  Report Type: 
  Country: None (occurrence: None)
  Receive Date: 20080729
  Receipt Date: 20080724
  Transmission Date: 20090109
  Serious: Yes (Hospitalization)
  Sender: FDA-Public Use
  Company Number: JP-WYE-H00973307

PATIENT
  Sex: Male
  Weight: 56 kg

DRUGS (26)
  1. MYLOTARG [Suspect]
     Indication: ACUTE MYELOID LEUKAEMIA RECURRENT
     Route: 041
     Dates: start: 20060913, end: 20060913
  2. MYLOTARG [Suspect]
     Route: 041
     Dates: start: 20060916, end: 20060916
  3. MYLOTARG [Suspect]
     Route: 041
     Dates: start: 20060919, end: 20060919
  4. COTRIM [Concomitant]
     Indication: PROPHYLAXIS
     Dosage: 1 DOSE FORM/DAY
     Route: 048
     Dates: start: 20060913
  5. OMEPRAL [Concomitant]
     Indication: PROPHYLAXIS
     Route: 048
     Dates: start: 20060913
  6. PROGRAF [Concomitant]
     Route: 048
     Dates: start: 20060913
  7. UNIPHYL [Concomitant]
     Route: 048
     Dates: start: 20060913
  8. BEZATOL - SLOW RELEASE [Concomitant]
     Indication: PROPHYLAXIS
     Route: 048
     Dates: start: 20060913
  9. PREDONINE [Concomitant]
     Route: 048
     Dates: start: 20060913
  10. CLARITHROMYCIN [Concomitant]
     Route: 048
     Dates: start: 20060913, end: 20060928
  11. ETHAMBUTOL HCL [Concomitant]
     Route: 048
     Dates: start: 20060913, end: 20060928
  12. RIFADIN [Concomitant]
     Route: 048
     Dates: start: 20060913, end: 20060928
  13. CIPROFLOXACIN HCL [Concomitant]
     Route: 048
     Dates: start: 20060913, end: 20060928
  14. PRIMPERAN TAB [Concomitant]
     Indication: PROPHYLAXIS
     Route: 048
     Dates: start: 20060913
  15. CODEINE PHOSPHATE [Concomitant]
     Route: 048
     Dates: start: 20060913
  16. LOXONIN [Concomitant]
     Route: 048
     Dates: start: 20060913
  17. LENDORMIN [Concomitant]
     Route: 048
     Dates: start: 20060913
  18. AMBISOME [Concomitant]
     Route: 041
     Dates: start: 20060913
  19. NOVOLIN R [Concomitant]
     Dosage: NOT PROVIDED
     Route: 058
     Dates: start: 20060913
  20. FIRSTCIN [Concomitant]
     Route: 041
     Dates: start: 20060923, end: 20060928
  21. ROPION [Concomitant]
     Route: 041
     Dates: start: 20060928, end: 20061001
  22. MORPHINE HCL ELIXIR [Concomitant]
     Dosage: NOT PROVIDED
     Route: 041
     Dates: start: 20060928, end: 20061007
  23. MEROPEN [Concomitant]
     Route: 041
     Dates: start: 20060928, end: 20061023
  24. TOBRACIN [Concomitant]
     Route: 041
     Dates: start: 20060929, end: 20061023
  25. FUNGUARD [Concomitant]
     Route: 041
     Dates: start: 20060929, end: 20061001
  26. URSO 250 [Concomitant]
     Indication: PROPHYLAXIS
     Route: 048
     Dates: start: 20060913

REACTIONS (4)
  - BLOOD BILIRUBIN INCREASED [None]
  - NEUTROPHIL COUNT DECREASED [None]
  - PSEUDOMONAS INFECTION [None]
  - SEPSIS [None]
